FAERS Safety Report 7116761-7 (Version None)
Quarter: 2010Q4

REPORT INFORMATION
  Report Type: 
  Country: None (occurrence: None)
  Receive Date: 20101122
  Receipt Date: 20101115
  Transmission Date: 20110411
  Serious: Yes (Life-Threatening)
  Sender: FDA-Public Use
  Company Number: GXKR2010GB12565

PATIENT
  Age: 48 Year
  Sex: Female

DRUGS (4)
  1. CITALOPRAM (NGX) [Suspect]
     Dosage: 20 MG, BID
     Route: 048
  2. OLANZAPINE [Suspect]
     Dosage: 5 MG, QD
     Route: 048
  3. DIAZEPAM [Suspect]
     Dosage: 2 MG, TID
     Route: 048
  4. ZOPICLONE [Suspect]
     Dosage: 3.75 MG, UNK
     Route: 048

REACTIONS (1)
  - RESPIRATORY ARREST [None]
